FAERS Safety Report 5020661-6 (Version None)
Quarter: 2006Q2

REPORT INFORMATION
  Report Type: 
  Country: None (occurrence: None)
  Receive Date: 20060602
  Receipt Date: 20060512
  Transmission Date: 20061013
  Serious: Yes (Hospitalization, Other)
  Sender: FDA-Public Use
  Company Number: US200601004698

PATIENT
  Age: 76 Year
  Sex: Female

DRUGS (1)
  1. EVISTA [Suspect]
     Dosage: SEE IMAGE
     Route: 048
     Dates: start: 20040101

REACTIONS (12)
  - COMMINUTED FRACTURE [None]
  - DEFORMITY [None]
  - FALL [None]
  - IMPAIRED HEALING [None]
  - JOINT STIFFNESS [None]
  - MUSCULOSKELETAL STIFFNESS [None]
  - PAIN [None]
  - RADIUS FRACTURE [None]
  - SWELLING [None]
  - SYNOVITIS [None]
  - TRIGGER FINGER [None]
  - ULNA FRACTURE [None]
